FAERS Safety Report 25383042 (Version 1)
Quarter: 2025Q2

REPORT INFORMATION
  Report Type: Spontaneous
  Country: US (occurrence: US)
  Receive Date: 20250602
  Receipt Date: 20250602
  Transmission Date: 20250717
  Serious: No
  Sender: ROCHE
  Company Number: US-ROCHE-10000294571

PATIENT
  Sex: Female

DRUGS (1)
  1. ACTEMRA [Suspect]
     Active Substance: TOCILIZUMAB
     Indication: Giant cell arteritis
     Dosage: (STRENGTH REPORTED AS: 162MG/0,9M)
     Route: 058
     Dates: start: 202203

REACTIONS (3)
  - Pyrexia [Unknown]
  - Autoimmune thyroiditis [Unknown]
  - Skin discolouration [Unknown]
